FAERS Safety Report 10031420 (Version 2)
Quarter: 2014Q1

REPORT INFORMATION
  Report Type: Spontaneous
  Country: JP (occurrence: JP)
  Receive Date: 20140324
  Receipt Date: 20140327
  Transmission Date: 20141002
  Serious: Yes (Hospitalization, Other)
  Sender: FDA-Public Use
  Company Number: JP-BAYER-2014-038823

PATIENT
  Age: 84 Year
  Sex: Female

DRUGS (3)
  1. ACETYLSALICYLIC ACID({=100 MG) [Suspect]
     Indication: ANTICOAGULANT THERAPY
     Dosage: DAILY DOSE 100 MG
     Route: 048
  2. CLOPIDOGREL SULFATE [Interacting]
     Indication: ANTICOAGULANT THERAPY
     Dosage: DAILY DOSE 75 MG
     Route: 048
  3. WARFARIN POTASSIUM [Interacting]
     Indication: ANTICOAGULANT THERAPY
     Dosage: DAILY DOSE 2.5 MG
     Route: 048

REACTIONS (3)
  - Subdural haematoma [Recovering/Resolving]
  - Labelled drug-drug interaction medication error [None]
  - Brain herniation [None]
